FAERS Safety Report 6608108-7 (Version None)
Quarter: 2010Q1

REPORT INFORMATION
  Report Type: 
  Country: None (occurrence: None)
  Receive Date: 20100226
  Receipt Date: 20100226
  Transmission Date: 20100710
  Serious: No
  Sender: FDA-Public Use
  Company Number: None

PATIENT
  Age: 44 Year
  Sex: Female
  Weight: 68.9467 kg

DRUGS (5)
  1. SERTRALINE HCL [Suspect]
     Dosage: 200MG PO
     Route: 048
  2. SYNTHROID [Concomitant]
  3. THIAMINE [Concomitant]
  4. LORAZEPAM [Concomitant]
  5. DIASTAT GEL [Concomitant]

REACTIONS (1)
  - GRAND MAL CONVULSION [None]
